FAERS Safety Report 21379676 (Version 2)
Quarter: 2022Q4

REPORT INFORMATION
  Report Type: Spontaneous
  Country: CA (occurrence: None)
  Receive Date: 20220927
  Receipt Date: 20221013
  Transmission Date: 20230113
  Serious: Yes (Other)
  Sender: FDA-Public Use
  Company Number: CA-AMGEN-CANSP2022162649

PATIENT
  Age: 63 Year
  Sex: Female

DRUGS (77)
  1. METHOTREXATE [Suspect]
     Active Substance: METHOTREXATE
     Indication: Rheumatoid arthritis
     Route: 048
  2. METHOTREXATE [Suspect]
     Active Substance: METHOTREXATE
     Route: 058
  3. METHOTREXATE [Suspect]
     Active Substance: METHOTREXATE
     Route: 048
  4. METHOTREXATE [Suspect]
     Active Substance: METHOTREXATE
     Route: 058
  5. METHOTREXATE [Suspect]
     Active Substance: METHOTREXATE
     Route: 048
  6. METHOTREXATE [Suspect]
     Active Substance: METHOTREXATE
     Route: 048
  7. METHOTREXATE [Suspect]
     Active Substance: METHOTREXATE
     Route: 065
  8. METHOTREXATE [Suspect]
     Active Substance: METHOTREXATE
     Route: 058
  9. METHOTREXATE [Suspect]
     Active Substance: METHOTREXATE
     Route: 058
  10. ENBREL [Suspect]
     Active Substance: ETANERCEPT
     Indication: Rheumatoid arthritis
     Route: 058
  11. ENBREL [Suspect]
     Active Substance: ETANERCEPT
     Route: 058
  12. ENBREL [Suspect]
     Active Substance: ETANERCEPT
     Route: 058
  13. ENBREL [Suspect]
     Active Substance: ETANERCEPT
     Route: 058
  14. RITUXIMAB [Suspect]
     Active Substance: RITUXIMAB
     Indication: Rheumatoid arthritis
     Route: 040
  15. RITUXIMAB [Suspect]
     Active Substance: RITUXIMAB
     Route: 042
  16. RITUXIMAB [Suspect]
     Active Substance: RITUXIMAB
     Route: 065
  17. RITUXIMAB [Suspect]
     Active Substance: RITUXIMAB
     Route: 042
  18. RITUXIMAB [Suspect]
     Active Substance: RITUXIMAB
     Route: 042
  19. SULFASALAZINE [Suspect]
     Active Substance: SULFASALAZINE
     Indication: Rheumatoid arthritis
     Route: 048
  20. SULFASALAZINE [Suspect]
     Active Substance: SULFASALAZINE
     Route: 048
  21. SULFASALAZINE [Suspect]
     Active Substance: SULFASALAZINE
     Route: 048
  22. ACTEMRA [Suspect]
     Active Substance: TOCILIZUMAB
     Indication: Product used for unknown indication
     Route: 065
  23. ACTEMRA [Suspect]
     Active Substance: TOCILIZUMAB
     Route: 040
  24. LEFLUNOMIDE [Suspect]
     Active Substance: LEFLUNOMIDE
     Indication: Rheumatoid arthritis
     Route: 065
  25. LEFLUNOMIDE [Suspect]
     Active Substance: LEFLUNOMIDE
     Route: 048
  26. ARAVA [Suspect]
     Active Substance: LEFLUNOMIDE
     Indication: Rheumatoid arthritis
     Route: 048
  27. ARAVA [Suspect]
     Active Substance: LEFLUNOMIDE
     Route: 048
  28. GOLD [Suspect]
     Active Substance: GOLD
     Indication: Product used for unknown indication
     Route: 065
  29. HUMIRA [Suspect]
     Active Substance: ADALIMUMAB
     Indication: Rheumatoid arthritis
     Route: 058
  30. HUMIRA [Suspect]
     Active Substance: ADALIMUMAB
     Route: 058
  31. HUMIRA [Suspect]
     Active Substance: ADALIMUMAB
     Dosage: Q2WK
     Route: 058
  32. LEFLUNOMIDE [Suspect]
     Active Substance: LEFLUNOMIDE
     Indication: Rheumatoid arthritis
     Route: 065
  33. LEFLUNOMIDE [Suspect]
     Active Substance: LEFLUNOMIDE
     Route: 065
  34. LEFLUNOMIDE [Suspect]
     Active Substance: LEFLUNOMIDE
     Route: 058
  35. MYOCHRYSINE [Suspect]
     Active Substance: GOLD SODIUM THIOMALATE
     Indication: Product used for unknown indication
     Route: 030
  36. MYOCHRYSINE [Suspect]
     Active Substance: GOLD SODIUM THIOMALATE
     Route: 030
  37. ORENCIA [Suspect]
     Active Substance: ABATACEPT
     Indication: Rheumatoid arthritis
     Route: 065
  38. ORENCIA [Suspect]
     Active Substance: ABATACEPT
     Route: 058
  39. ORENCIA [Suspect]
     Active Substance: ABATACEPT
     Route: 065
  40. CHLOROQUINE [Suspect]
     Active Substance: CHLOROQUINE
     Indication: Rheumatoid arthritis
     Route: 065
  41. CYCLOSPORINE [Suspect]
     Active Substance: CYCLOSPORINE
     Indication: Rheumatoid arthritis
     Route: 058
  42. DOXYCYCLINE [Suspect]
     Active Substance: DOXYCYCLINE
     Indication: Product used for unknown indication
     Route: 065
  43. NEORAL [Suspect]
     Active Substance: CYCLOSPORINE
     Indication: Rheumatoid arthritis
     Route: 065
  44. HYDROXYCHLOROQUINE [Suspect]
     Active Substance: HYDROXYCHLOROQUINE
     Indication: Rheumatoid arthritis
     Route: 048
  45. HYDROXYCHLOROQUINE [Suspect]
     Active Substance: HYDROXYCHLOROQUINE
     Route: 048
  46. HYDROXYCHLOROQUINE [Suspect]
     Active Substance: HYDROXYCHLOROQUINE
     Dosage: 2 TIMES/WK
     Route: 048
  47. HYDROXYCHLOROQUINE [Suspect]
     Active Substance: HYDROXYCHLOROQUINE
     Route: 048
  48. HYDROXYCHLOROQUINE [Suspect]
     Active Substance: HYDROXYCHLOROQUINE
     Route: 058
  49. PLAQUENIL [Suspect]
     Active Substance: HYDROXYCHLOROQUINE SULFATE
     Indication: Rheumatoid arthritis
     Route: 048
  50. SIMPONI [Suspect]
     Active Substance: GOLIMUMAB
     Indication: Rheumatoid arthritis
     Route: 058
  51. REMICADE [Suspect]
     Active Substance: INFLIXIMAB
     Indication: Rheumatoid arthritis
     Route: 040
  52. REMICADE [Suspect]
     Active Substance: INFLIXIMAB
     Route: 040
  53. XELJANZ [Concomitant]
     Active Substance: TOFACITINIB CITRATE
     Indication: Rheumatoid arthritis
     Route: 048
  54. XELJANZ [Concomitant]
     Active Substance: TOFACITINIB CITRATE
     Route: 048
  55. CIMZIA [Concomitant]
     Active Substance: CERTOLIZUMAB PEGOL
     Route: 058
  56. CIMZIA [Concomitant]
     Active Substance: CERTOLIZUMAB PEGOL
     Route: 058
  57. RISEDRONATE SODIUM [Concomitant]
     Active Substance: RISEDRONATE SODIUM
     Route: 048
  58. RISEDRONATE SODIUM [Concomitant]
     Active Substance: RISEDRONATE SODIUM
     Route: 048
  59. RISEDRONATE SODIUM [Concomitant]
     Active Substance: RISEDRONATE SODIUM
     Route: 048
  60. HYDROXYCHLOROQUINE SULFATE [Concomitant]
     Active Substance: HYDROXYCHLOROQUINE SULFATE
     Indication: Rheumatoid arthritis
     Route: 065
  61. HYDROXYCHLOROQUINE SULFATE [Concomitant]
     Active Substance: HYDROXYCHLOROQUINE SULFATE
     Route: 065
  62. HYDROXYCHLOROQUINE SULFATE [Concomitant]
     Active Substance: HYDROXYCHLOROQUINE SULFATE
     Route: 048
  63. HYDROXYCHLOROQUINE SULFATE [Concomitant]
     Active Substance: HYDROXYCHLOROQUINE SULFATE
     Route: 065
  64. HYDROXYCHLOROQUINE SULFATE [Concomitant]
     Active Substance: HYDROXYCHLOROQUINE SULFATE
     Route: 048
  65. BUPROPION [Concomitant]
     Active Substance: BUPROPION
     Route: 065
  66. FOLIC ACID [Concomitant]
     Active Substance: FOLIC ACID
     Route: 048
  67. CIMZIA [Concomitant]
     Active Substance: CERTOLIZUMAB PEGOL
     Route: 058
  68. CIMZIA [Concomitant]
     Active Substance: CERTOLIZUMAB PEGOL
     Route: 058
  69. XELJANZ [Concomitant]
     Active Substance: TOFACITINIB CITRATE
     Indication: Rheumatoid arthritis
     Route: 048
  70. XELJANZ [Concomitant]
     Active Substance: TOFACITINIB CITRATE
     Route: 048
  71. XELJANZ [Concomitant]
     Active Substance: TOFACITINIB CITRATE
     Route: 065
  72. XELJANZ [Concomitant]
     Active Substance: TOFACITINIB CITRATE
     Route: 048
  73. XELJANZ [Concomitant]
     Active Substance: TOFACITINIB CITRATE
     Route: 065
  74. XELJANZ [Concomitant]
     Active Substance: TOFACITINIB CITRATE
     Route: 048
  75. PREDNISONE [Concomitant]
     Active Substance: PREDNISONE
     Indication: Rheumatoid arthritis
     Route: 048
  76. TOFACITINIB CITRATE [Concomitant]
     Active Substance: TOFACITINIB CITRATE
     Route: 065
  77. WELLBUTRIN [Concomitant]
     Active Substance: BUPROPION HYDROCHLORIDE
     Route: 065

REACTIONS (20)
  - Drug ineffective [Not Recovered/Not Resolved]
  - Off label use [Not Recovered/Not Resolved]
  - Contraindicated product administered [Not Recovered/Not Resolved]
  - Product use issue [Not Recovered/Not Resolved]
  - Therapeutic product effect incomplete [Not Recovered/Not Resolved]
  - Rheumatoid arthritis [Not Recovered/Not Resolved]
  - Drug intolerance [Not Recovered/Not Resolved]
  - Treatment failure [Not Recovered/Not Resolved]
  - Condition aggravated [Not Recovered/Not Resolved]
  - Fatigue [Not Recovered/Not Resolved]
  - Hepatic enzyme increased [Not Recovered/Not Resolved]
  - Hepatitis [Not Recovered/Not Resolved]
  - Hypersensitivity [Not Recovered/Not Resolved]
  - Nausea [Not Recovered/Not Resolved]
  - Pneumonia [Not Recovered/Not Resolved]
  - Pain [Not Recovered/Not Resolved]
  - Red blood cell sedimentation rate increased [Not Recovered/Not Resolved]
  - Rheumatoid factor positive [Not Recovered/Not Resolved]
  - Synovitis [Not Recovered/Not Resolved]
  - Vomiting [Not Recovered/Not Resolved]
